FAERS Safety Report 7807947-4 (Version None)
Quarter: 2011Q4

REPORT INFORMATION
  Report Type: 
  Country: None (occurrence: None)
  Receive Date: 20111011
  Receipt Date: 20111011
  Transmission Date: 20120403
  Serious: Yes (Life-Threatening, Hospitalization)
  Sender: FDA-Public Use
  Company Number: None

PATIENT
  Age: 50 Year
  Sex: Female
  Weight: 92.986 kg

DRUGS (1)
  1. NIASPAN [Suspect]
     Indication: BLOOD CHOLESTEROL INCREASED
     Dosage: 1 TABLET
     Route: 048
     Dates: start: 20111007, end: 20111007

REACTIONS (8)
  - HEART RATE INCREASED [None]
  - DYSPNOEA [None]
  - LYMPHOEDEMA [None]
  - OEDEMA PERIPHERAL [None]
  - NAUSEA [None]
  - DIZZINESS [None]
  - CHEST DISCOMFORT [None]
  - EYE PAIN [None]
